FAERS Safety Report 8718818 (Version 2)
Quarter: 2012Q4

REPORT INFORMATION
  Report Type: Report from Study
  Country: JP (occurrence: JP)
  Receive Date: 20120810
  Receipt Date: 20121211
  Transmission Date: 20130627
  Serious: Yes (Other)
  Sender: FDA-Public Use
  Company Number: JP-VERTEX PHARMACEUTICALS INC.-AE-2012-009736

PATIENT
  Age: 57 Year
  Sex: Female

DRUGS (10)
  1. VX-950 (TELAPREVIR) [Suspect]
     Indication: CHRONIC HEPATITIS C
     Dosage: 1500 mg, qd
     Route: 048
     Dates: start: 20120428, end: 20120717
  2. RIBAVIRIN [Suspect]
     Indication: CHRONIC HEPATITIS C
     Dosage: 800 mg, qd
     Route: 048
     Dates: start: 20120428, end: 20120517
  3. RIBAVIRIN [Suspect]
     Dosage: 400 mg, qd
     Route: 048
     Dates: start: 20120518, end: 20120628
  4. RIBAVIRIN [Suspect]
     Dosage: 600 mg, qd
     Route: 048
     Dates: start: 20120629, end: 20121004
  5. PEGINTERFERON ALFA-2B [Concomitant]
     Dosage: 1.5 ?g/kg, qw
     Route: 058
     Dates: start: 20120428, end: 20121004
  6. EPADEL S [Concomitant]
     Dosage: 1800 mg, qd
     Route: 048
  7. FEROTYM [Concomitant]
     Dosage: 100 mg, qd
     Route: 048
  8. CLARITIN REDITABS [Concomitant]
     Dosage: 10 mg, qd
     Route: 048
  9. ACECOL [Concomitant]
     Dosage: 2 mg, qd
     Route: 048
  10. LIVALO [Concomitant]
     Dosage: 2 mg, qd
     Route: 048

REACTIONS (3)
  - Anaemia [Not Recovered/Not Resolved]
  - Anaemia [Not Recovered/Not Resolved]
  - Rash [Not Recovered/Not Resolved]
